FAERS Safety Report 16170634 (Version 5)
Quarter: 2020Q4

REPORT INFORMATION
  Report Type: Report from Study
  Country: US (occurrence: US)
  Receive Date: 20190408
  Receipt Date: 20201126
  Transmission Date: 20210113
  Serious: Yes (Hospitalization, Other)
  Sender: FDA-Public Use
  Company Number: US-INCYTE CORPORATION-2019IN003334

PATIENT

DRUGS (14)
  1. XARELTO [Concomitant]
     Active Substance: RIVAROXABAN
     Indication: PRODUCT USED FOR UNKNOWN INDICATION
     Dosage: 15 MILLIGRAM, QHS
     Route: 065
  2. HYDREA [Suspect]
     Active Substance: HYDROXYUREA
     Dosage: 500 MILLIGRAM, BID
     Route: 065
     Dates: start: 201911, end: 201912
  3. LIPITOR [Concomitant]
     Active Substance: ATORVASTATIN CALCIUM
     Indication: PRODUCT USED FOR UNKNOWN INDICATION
     Dosage: 10 MILLIGRAM, QHS
     Route: 065
  4. JAKAFI [Suspect]
     Active Substance: RUXOLITINIB
     Indication: POLYCYTHAEMIA VERA
     Dosage: 10 MILLIGRAM, BID
     Route: 048
     Dates: start: 20180605
  5. JAKAFI [Suspect]
     Active Substance: RUXOLITINIB
     Dosage: 5 MILLIGRAM, BID
     Route: 048
  6. JAKAFI [Suspect]
     Active Substance: RUXOLITINIB
     Dosage: 10 MILLIGRAM, BID
     Route: 048
     Dates: start: 20180605
  7. LATANOPROST. [Concomitant]
     Active Substance: LATANOPROST
     Indication: INTRAOCULAR PRESSURE INCREASED
     Dosage: UNK
     Route: 047
  8. JAKAFI [Suspect]
     Active Substance: RUXOLITINIB
     Dosage: 5 MILLIGRAM, BID
     Route: 048
  9. HYDREA [Suspect]
     Active Substance: HYDROXYUREA
     Indication: PLATELET COUNT INCREASED
     Dosage: 500 MILLIGRAM, QOD
     Route: 065
     Dates: start: 201909, end: 201911
  10. HYDREA [Suspect]
     Active Substance: HYDROXYUREA
     Dosage: UNK, BID
     Route: 065
  11. ASPIRIN [ACETYLSALICYLIC ACID] [Concomitant]
     Active Substance: ASPIRIN
     Indication: PRODUCT USED FOR UNKNOWN INDICATION
     Dosage: 81 MILLIGRAM, QD
     Route: 065
  12. HYDREA [Suspect]
     Active Substance: HYDROXYUREA
     Dosage: UNK, QOD
     Route: 065
  13. JAKAFI [Suspect]
     Active Substance: RUXOLITINIB
     Dosage: 5 MILLIGRAM, BID ALTERNATING WITH QD
     Route: 048
     Dates: start: 20190201
  14. HYDREA [Suspect]
     Active Substance: HYDROXYUREA
     Dosage: 500 MILLIGRAM, QHS
     Route: 065
     Dates: start: 201912

REACTIONS (17)
  - Hepatic vascular thrombosis [Recovering/Resolving]
  - Therapeutic response unexpected [Unknown]
  - Product dose omission issue [Unknown]
  - Biliary colic [Recovering/Resolving]
  - Aortic thrombosis [Recovering/Resolving]
  - Pneumonia [Recovering/Resolving]
  - Asthenia [Recovering/Resolving]
  - Asplenia [Recovering/Resolving]
  - White blood cell count increased [Unknown]
  - Laboratory test abnormal [Unknown]
  - Thrombosis [Recovering/Resolving]
  - Splenic thrombosis [Recovering/Resolving]
  - Platelet count increased [Recovering/Resolving]
  - Oedema peripheral [Recovering/Resolving]
  - Contusion [Unknown]
  - Intracardiac thrombus [Recovering/Resolving]
  - Stomatitis [Unknown]

NARRATIVE: CASE EVENT DATE: 20190201
